FAERS Safety Report 8313645-3 (Version None)
Quarter: 2012Q2

REPORT INFORMATION
  Report Type: 
  Country: None (occurrence: None)
  Receive Date: 20120426
  Receipt Date: 20120417
  Transmission Date: 20120825
  Serious: Yes (Other)
  Sender: FDA-Public Use
  Company Number: US-ASTRAZENECA-2011SE56117

PATIENT
  Age: 55 Year
  Sex: Female

DRUGS (4)
  1. INTERFERON [Concomitant]
     Indication: LIVER DISORDER
  2. PRILOSEC [Suspect]
     Route: 048
  3. PAIN MEDICATION [Suspect]
     Route: 065
  4. NEXIUM [Suspect]
     Route: 048

REACTIONS (11)
  - DYSPEPSIA [None]
  - GINGIVAL PAIN [None]
  - PROCEDURAL PAIN [None]
  - GINGIVAL ULCERATION [None]
  - PAIN [None]
  - ABDOMINAL DISCOMFORT [None]
  - INTENTIONAL DRUG MISUSE [None]
  - HEPATITIS C [None]
  - CONSTIPATION [None]
  - IRRITABLE BOWEL SYNDROME [None]
  - FLATULENCE [None]
